FAERS Safety Report 26064933 (Version 2)
Quarter: 2025Q4

REPORT INFORMATION
  Report Type: Report from Study
  Country: PH (occurrence: PH)
  Receive Date: 20251119
  Receipt Date: 20251128
  Transmission Date: 20260119
  Serious: Yes (Death, Other)
  Sender: PFIZER
  Company Number: PH-TAKEDA-2025TUS085308

PATIENT
  Age: 29 Year
  Sex: Male

DRUGS (1)
  1. ADCETRIS [Suspect]
     Active Substance: BRENTUXIMAB VEDOTIN
     Indication: Hodgkin^s disease refractory
     Dosage: 200 MILLIGRAM, Q3WEEKS
     Route: 042

REACTIONS (5)
  - Death [Fatal]
  - Haemoglobin decreased [Recovering/Resolving]
  - Diarrhoea [Recovered/Resolved]
  - Fatigue [Recovered/Resolved]
  - Abdominal discomfort [Recovered/Resolved]

NARRATIVE: CASE EVENT DATE: 20251111
